FAERS Safety Report 8617413-4 (Version None)
Quarter: 2012Q3

REPORT INFORMATION
  Report Type: 
  Country: None (occurrence: None)
  Receive Date: 20120823
  Receipt Date: 20120807
  Transmission Date: 20120928
  Serious: No
  Sender: FDA-Public Use
  Company Number: US-009507513-1205USA04794

PATIENT

DRUGS (1)
  1. PROPECIA [Suspect]
     Indication: ALOPECIA
     Dosage: 1 MG, QD
     Route: 048
     Dates: start: 20070101, end: 20120518

REACTIONS (21)
  - PAIN [None]
  - PROSTATIC PAIN [None]
  - ERYTHEMA [None]
  - INSOMNIA [None]
  - ERECTILE DYSFUNCTION [None]
  - WEIGHT DECREASED [None]
  - FAT TISSUE INCREASED [None]
  - MUSCLE ATROPHY [None]
  - PENIS DISORDER [None]
  - PANIC ATTACK [None]
  - DEPRESSION [None]
  - HOT FLUSH [None]
  - PENILE SIZE REDUCED [None]
  - AMNESIA [None]
  - ARTHRALGIA [None]
  - PENILE CURVATURE [None]
  - LOSS OF LIBIDO [None]
  - TESTICULAR PAIN [None]
  - DISTURBANCE IN ATTENTION [None]
  - GENITAL HYPOAESTHESIA [None]
  - PARAESTHESIA [None]
